FAERS Safety Report 7377339-3 (Version None)
Quarter: 2011Q1

REPORT INFORMATION
  Report Type: 
  Country: None (occurrence: None)
  Receive Date: 20110328
  Receipt Date: 20110316
  Transmission Date: 20110831
  Serious: Yes (Life-Threatening)
  Sender: FDA-Public Use
  Company Number: TW-JNJFOC-20110307964

PATIENT
  Age: 44 Year
  Sex: Female
  Weight: 73.48 kg

DRUGS (9)
  1. CLOZAPINE [Suspect]
     Dosage: EVERY NIGHT
     Route: 048
  2. HALDOL [Suspect]
     Indication: SCHIZOPHRENIA
     Route: 048
  3. HALDOL [Suspect]
     Route: 048
  4. HALDOL [Suspect]
     Dosage: EVERY NIGHT
     Route: 048
  5. FAMOTIDINE [Concomitant]
     Route: 065
  6. CLOZAPINE [Suspect]
     Indication: SCHIZOPHRENIA
     Route: 048
  7. CEFPIROME [Concomitant]
     Route: 065
  8. VALPROIC ACID [Concomitant]
     Route: 065
  9. ACETAMINOPHEN [Concomitant]
     Route: 065

REACTIONS (8)
  - TACHYCARDIA [None]
  - PYREXIA [None]
  - MUSCLE RIGIDITY [None]
  - IRRITABILITY [None]
  - LEUKOCYTOSIS [None]
  - CONVULSION [None]
  - HYPOKALAEMIA [None]
  - MUTISM [None]
